FAERS Safety Report 6431767-9 (Version None)
Quarter: 2009Q4

REPORT INFORMATION
  Report Type: 
  Country: None (occurrence: None)
  Receive Date: 20091104
  Receipt Date: 20091020
  Transmission Date: 20100525
  Serious: Yes (Hospitalization)
  Sender: FDA-Public Use
  Company Number: AUR-APL-2009-00507

PATIENT
  Sex: Male

DRUGS (1)
  1. AMOXICILLIN [Suspect]

REACTIONS (2)
  - DELIRIUM [None]
  - ERYTHEMA [None]
